FAERS Safety Report 23172435 (Version 1)
Quarter: 2023Q4

REPORT INFORMATION
  Report Type: Report from Study
  Country: JP (occurrence: JP)
  Receive Date: 20231110
  Receipt Date: 20231110
  Transmission Date: 20240110
  Serious: Yes (Other)
  Sender: FDA-Public Use
  Company Number: JP-ALXN-A202101596AA

PATIENT
  Age: 83 Year
  Sex: Female
  Weight: 50 kg

DRUGS (12)
  1. ULTOMIRIS [Suspect]
     Active Substance: RAVULIZUMAB-CWVZ
     Indication: Paroxysmal nocturnal haemoglobinuria
     Dosage: 2400 MG, SINGLE
     Route: 042
     Dates: start: 20191108
  2. ULTOMIRIS [Suspect]
     Active Substance: RAVULIZUMAB-CWVZ
     Dosage: 3000 MILLIGRAM, Q56
     Route: 042
     Dates: start: 20191122
  3. NEORAL [Concomitant]
     Active Substance: CYCLOSPORINE
     Indication: Paroxysmal nocturnal haemoglobinuria
     Dosage: 100 MG, BID,AFTER BREAKFAST,AFTER DINNER
     Route: 048
     Dates: start: 20170630, end: 20191219
  4. NEORAL [Concomitant]
     Active Substance: CYCLOSPORINE
     Dosage: 50 MG, BID
     Route: 048
     Dates: start: 20191220
  5. PRIMOBOLAN                         /00044802/ [Concomitant]
     Indication: Paroxysmal nocturnal haemoglobinuria
     Dosage: 5 MG, BID, AFTER BREAKFAST,AFTER DINNER
     Route: 048
     Dates: start: 20170508
  6. PRIMOBOLAN                         /00044802/ [Concomitant]
     Dosage: 10 MILLIGRAM, QD 2/1 AFTER BREAKFAST AND DINNER
     Route: 048
  7. SODIUM FERROUS CITRATE [Concomitant]
     Active Substance: SODIUM FERROUS CITRATE
     Indication: Paroxysmal nocturnal haemoglobinuria
     Dosage: 50 MG, BID, AFTER BREAKFAST,AFTER DINNER
     Route: 048
     Dates: start: 20191108, end: 20191121
  8. SULFAMETHOXAZOLE\TRIMETHOPRIM [Concomitant]
     Active Substance: SULFAMETHOXAZOLE\TRIMETHOPRIM
     Indication: Paroxysmal nocturnal haemoglobinuria
     Dosage: 1 G, QD
     Route: 048
  9. SULFAMETHOXAZOLE\TRIMETHOPRIM [Concomitant]
     Active Substance: SULFAMETHOXAZOLE\TRIMETHOPRIM
     Indication: Infection prophylaxis
  10. POLAPREZINC [Concomitant]
     Active Substance: POLAPREZINC
     Indication: Paroxysmal nocturnal haemoglobinuria
     Dosage: 75 MG, BID
     Route: 048
  11. POLAPREZINC [Concomitant]
     Active Substance: POLAPREZINC
     Indication: Prophylaxis
  12. POLAPREZINC [Concomitant]
     Active Substance: POLAPREZINC
     Indication: Gastric ulcer

REACTIONS (5)
  - Atrial fibrillation [Recovered/Resolved]
  - Irritability [Recovered/Resolved]
  - Malaise [Recovered/Resolved]
  - Cardiac murmur [Not Recovered/Not Resolved]
  - Infusion related reaction [Recovered/Resolved]

NARRATIVE: CASE EVENT DATE: 20191108
